FAERS Safety Report 8921663 (Version 1)
Quarter: 2012Q4

REPORT INFORMATION
  Report Type: 
  Country: US (occurrence: US)
  Receive Date: 20121121
  Receipt Date: 20121121
  Transmission Date: 20130627
  Serious: Yes (Death)
  Sender: FDA-Public Use
  Company Number: US-ROCHE-1158127

PATIENT
  Sex: Female

DRUGS (6)
  1. ACTEMRA [Suspect]
     Indication: RHEUMATOID ARTHRITIS
     Route: 042
  2. BONIVA [Concomitant]
     Route: 065
  3. ACTONEL [Concomitant]
     Route: 065
  4. LUNESTA [Concomitant]
     Route: 065
  5. FOSAMAX [Concomitant]
     Route: 065
  6. PROZAC [Concomitant]
     Route: 065

REACTIONS (1)
  - Death [Fatal]
